FAERS Safety Report 25199816 (Version 1)
Quarter: 2025Q2

REPORT INFORMATION
  Report Type: Spontaneous
  Country: US (occurrence: US)
  Receive Date: 20250415
  Receipt Date: 20250415
  Transmission Date: 20250716
  Serious: No
  Sender: FENNEC PHARMACEUTICALS
  Company Number: US-FENNEC PHARMACEUTICALS, INC.-2025FEN00021

PATIENT
  Age: 58 Year
  Sex: Female

DRUGS (3)
  1. PEDMARK [Suspect]
     Active Substance: SODIUM THIOSULFATE
     Dosage: 34 G, 1X/WEEK
     Route: 042
     Dates: start: 20250130, end: 20250130
  2. PEDMARK [Suspect]
     Active Substance: SODIUM THIOSULFATE
     Dosage: 34 G, 1X/WEEK
     Route: 042
     Dates: start: 20250206, end: 20250206
  3. PEDMARK [Suspect]
     Active Substance: SODIUM THIOSULFATE
     Dosage: 34 G, 1X/WEEK
     Route: 042
     Dates: start: 2025

REACTIONS (5)
  - Dehydration [Unknown]
  - Nausea [Unknown]
  - Vomiting [Unknown]
  - White blood cell count decreased [Unknown]
  - Off label use [Unknown]

NARRATIVE: CASE EVENT DATE: 20250101
